FAERS Safety Report 19212770 (Version 1)
Quarter: 2021Q2

REPORT INFORMATION
  Report Type: Report from Study
  Country: IN (occurrence: IN)
  Receive Date: 20210504
  Receipt Date: 20210504
  Transmission Date: 20210717
  Serious: Yes (Hospitalization)
  Sender: FDA-Public Use
  Company Number: NVSC2021IN098915

PATIENT
  Age: 90 Year
  Sex: Male

DRUGS (2)
  1. SIMBRINZA [Suspect]
     Active Substance: BRIMONIDINE TARTRATE\BRINZOLAMIDE
     Indication: GLAUCOMA
     Dosage: 5 ML, BID
     Route: 047
     Dates: start: 20170818
  2. TRAVACOM [Suspect]
     Active Substance: TIMOLOL MALEATE\TRAVOPROST
     Indication: GLAUCOMA
     Dosage: 2.5 ML, QD
     Route: 047
     Dates: start: 20170818, end: 20210305

REACTIONS (2)
  - COVID-19 [Recovered/Resolved]
  - Intraocular pressure increased [Unknown]

NARRATIVE: CASE EVENT DATE: 20210305
